FAERS Safety Report 10082453 (Version 1)
Quarter: 2014Q2

REPORT INFORMATION
  Report Type: Spontaneous
  Country: US (occurrence: None)
  Receive Date: 20140415
  Receipt Date: 20140415
  Transmission Date: 20141212
  Serious: Yes (Other)
  Sender: FDA-Public Use
  Company Number: None

PATIENT
  Age: 64 Year
  Sex: Female

DRUGS (2)
  1. AMLODIPINE BESYLATE [Suspect]
  2. LOSARTAN 100MG [Concomitant]

REACTIONS (4)
  - Cough [None]
  - Asthma [None]
  - Nasopharyngitis [None]
  - Influenza [None]
